FAERS Safety Report 15410562 (Version 1)
Quarter: 2018Q3

REPORT INFORMATION
  Report Type: Spontaneous
  Country: KR (occurrence: KR)
  Receive Date: 20180921
  Receipt Date: 20180921
  Transmission Date: 20181010
  Serious: Yes (Other)
  Sender: FDA-Public Use
  Company Number: KR-009507513-1809KOR007250

PATIENT
  Age: 88 Year
  Sex: Male

DRUGS (1)
  1. PROSCAR [Suspect]
     Active Substance: FINASTERIDE
     Dosage: UNK
     Route: 048
     Dates: start: 201808, end: 20180903

REACTIONS (5)
  - Constipation [Unknown]
  - Proctotomy [Unknown]
  - Cold sweat [Unknown]
  - Paraesthesia [Unknown]
  - Thirst [Unknown]

NARRATIVE: CASE EVENT DATE: 2018
